FAERS Safety Report 7324504-7 (Version None)
Quarter: 2011Q1

REPORT INFORMATION
  Report Type: 
  Country: None (occurrence: None)
  Receive Date: 20110203
  Receipt Date: 20100621
  Transmission Date: 20110831
  Serious: Yes (Other)
  Sender: FDA-Public Use
  Company Number: 8011467

PATIENT
  Age: 58 Year
  Sex: Male

DRUGS (9)
  1. FUROSEMIDE [Concomitant]
  2. DONEPEZIL HCL [Concomitant]
  3. KEPPRA [Suspect]
     Dosage: SEE IMAGE
     Route: 048
  4. KEPPRA [Suspect]
     Dosage: SEE IMAGE
     Route: 048
  5. GABAPENTIN [Concomitant]
  6. OXYBUTYNIN [Concomitant]
  7. OLANZAPINE [Concomitant]
  8. PAROXETINE [Concomitant]
  9. TRAZODONE HCL [Concomitant]

REACTIONS (9)
  - PARKINSONISM [None]
  - GAIT DISTURBANCE [None]
  - POSTURE ABNORMAL [None]
  - WALKING DISABILITY [None]
  - LETHARGY [None]
  - TREMOR [None]
  - MUSCLE RIGIDITY [None]
  - DRUG INTERACTION [None]
  - BRADYKINESIA [None]
